FAERS Safety Report 14691275 (Version 1)
Quarter: 2018Q1

REPORT INFORMATION
  Report Type: Spontaneous
  Country: US (occurrence: US)
  Receive Date: 20180327
  Receipt Date: 20180327
  Transmission Date: 20180509
  Serious: No
  Sender: FDA-Public Use
  Company Number: None

PATIENT
  Age: 39 Year
  Sex: Female
  Weight: 63.5 kg

DRUGS (2)
  1. PROGESTERONE IN SESAME OIL 50MG/ML ACTAVIS US [Suspect]
     Active Substance: PROGESTERONE
     Indication: COMPLICATION OF PREGNANCY
     Route: 030
     Dates: start: 20171228
  2. PROGESTERONE IN SESAME OIL 50MG/ML ACTAVIS US [Suspect]
     Active Substance: PROGESTERONE
     Indication: INFERTILITY
     Route: 030
     Dates: start: 20171228

REACTIONS (2)
  - Injection site pain [None]
  - Loss of personal independence in daily activities [None]

NARRATIVE: CASE EVENT DATE: 20180101
